FAERS Safety Report 4654963-X (Version None)
Quarter: 2005Q2

REPORT INFORMATION
  Report Type: 
  Country: None (occurrence: None)
  Receive Date: 20050504
  Receipt Date: 20050419
  Transmission Date: 20051028
  Serious: Yes (Other)
  Sender: FDA-Public Use
  Company Number: GR-2005-005805

PATIENT
  Sex: Male

DRUGS (1)
  1. FLUDARA [Suspect]
     Indication: CHRONIC LYMPHOCYTIC LEUKAEMIA
     Dates: start: 20041201

REACTIONS (2)
  - RETINOPATHY [None]
  - VISUAL ACUITY REDUCED [None]
